FAERS Safety Report 10968925 (Version 3)
Quarter: 2015Q3

REPORT INFORMATION
  Report Type: Spontaneous
  Country: IT (occurrence: IT)
  Receive Date: 20150331
  Receipt Date: 20150807
  Transmission Date: 20151125
  Serious: Yes (Other)
  Sender: FDA-Public Use
  Company Number: IT-009507513-1503ITA012571

PATIENT
  Age: 47 Year
  Sex: Female
  Weight: 67 kg

DRUGS (1)
  1. MERCILON [Suspect]
     Active Substance: DESOGESTREL\ETHINYL ESTRADIOL
     Indication: ORAL CONTRACEPTION
     Dosage: UNK, QD
     Route: 048
     Dates: start: 19950101

REACTIONS (1)
  - Peripheral artery thrombosis [Recovered/Resolved with Sequelae]
